FAERS Safety Report 23213369 (Version 1)
Quarter: 2023Q4

REPORT INFORMATION
  Report Type: Spontaneous
  Country: CN (occurrence: CN)
  Receive Date: 20231121
  Receipt Date: 20231121
  Transmission Date: 20240110
  Serious: Yes (Hospitalization)
  Sender: FDA-Public Use
  Company Number: CN-002147023-NVSC2023CN244241

PATIENT
  Age: 71 Year
  Sex: Male
  Weight: 69 kg

DRUGS (2)
  1. VALSARTAN [Suspect]
     Active Substance: VALSARTAN
     Indication: Hypertension
     Dosage: 40 MG, QD
     Route: 048
     Dates: start: 20231030, end: 20231030
  2. LEVAMLODIPINE BESYLATE [Suspect]
     Active Substance: LEVAMLODIPINE BESYLATE
     Indication: Hypertension
     Dosage: 2.5 MG, QD
     Route: 048
     Dates: start: 20231030, end: 20231030

REACTIONS (2)
  - Oedema peripheral [Recovered/Resolved]
  - Chest discomfort [Unknown]

NARRATIVE: CASE EVENT DATE: 20231030
